FAERS Safety Report 18047937 (Version 1)
Quarter: 2020Q3

REPORT INFORMATION
  Report Type: Spontaneous
  Country: US (occurrence: US)
  Receive Date: 20200720
  Receipt Date: 20200720
  Transmission Date: 20201103
  Serious: Yes (Hospitalization)
  Sender: FDA-Public Use
  Company Number: None

PATIENT
  Age: 60 Year
  Sex: Female

DRUGS (7)
  1. OXYCODONE [Concomitant]
     Active Substance: OXYCODONE
  2. LETROZOLE. [Concomitant]
     Active Substance: LETROZOLE
  3. VITAMIN D [Concomitant]
     Active Substance: VITAMIN D NOS
  4. FLUOXETINE [Concomitant]
     Active Substance: FLUOXETINE HYDROCHLORIDE
  5. CEPHALEXIN. [Concomitant]
     Active Substance: CEPHALEXIN
  6. DOK [Concomitant]
     Active Substance: DOCUSATE SODIUM
  7. IBRANCE [Suspect]
     Active Substance: PALBOCICLIB
     Indication: BREAST CANCER FEMALE
     Dosage: 1 TAB QD  PO 21 D ON ? 7 D OFF
     Route: 048
     Dates: start: 20190202

REACTIONS (2)
  - Mastectomy [None]
  - Intentional dose omission [None]

NARRATIVE: CASE EVENT DATE: 20200707
